FAERS Safety Report 16613687 (Version 1)
Quarter: 2019Q3

REPORT INFORMATION
  Report Type: Spontaneous
  Country: IT (occurrence: IT)
  Receive Date: 20190723
  Receipt Date: 20190723
  Transmission Date: 20191004
  Serious: Yes (Life-Threatening)
  Sender: FDA-Public Use
  Company Number: IT-SA-2019SA196914

PATIENT
  Age: 81 Year
  Sex: Male
  Weight: 62 kg

DRUGS (5)
  1. PAROXETINE. [Concomitant]
     Active Substance: PAROXETINE
     Dosage: 20 MG
     Route: 048
     Dates: start: 20190704
  2. LOSARTAN. [Concomitant]
     Active Substance: LOSARTAN
     Route: 048
     Dates: start: 20190207
  3. NORMIX [Concomitant]
     Active Substance: RIFAXIMIN
     Indication: TYPE 2 DIABETES MELLITUS
     Dosage: 800 MG
     Route: 048
     Dates: start: 20190701, end: 20190707
  4. AMARYL [Suspect]
     Active Substance: GLIMEPIRIDE
     Indication: TYPE 2 DIABETES MELLITUS
     Dosage: 2 MG, QD
     Route: 048
     Dates: start: 20190704, end: 20190706
  5. PARACETAMOL [Concomitant]
     Active Substance: ACETAMINOPHEN
     Dosage: 1 G
     Route: 048
     Dates: start: 20190706

REACTIONS (4)
  - Hyperhidrosis [Recovered/Resolved]
  - Hypokinesia [Recovered/Resolved]
  - Malaise [Recovered/Resolved]
  - Hypoglycaemia [Recovered/Resolved]

NARRATIVE: CASE EVENT DATE: 20190706
